FAERS Safety Report 6943991-7 (Version None)
Quarter: 2010Q3

REPORT INFORMATION
  Report Type: 
  Country: None (occurrence: None)
  Receive Date: 20100827
  Receipt Date: 20100823
  Transmission Date: 20110219
  Serious: Yes (Hospitalization, Other)
  Sender: FDA-Public Use
  Company Number: US-ASTRAZENECA-2006UW07969

PATIENT
  Age: 51 Year
  Sex: Female
  Weight: 65.8 kg

DRUGS (32)
  1. SEROQUEL [Suspect]
     Indication: DEPRESSION
     Dosage: 25-300 MG
     Route: 048
     Dates: start: 20001001, end: 20001101
  2. SEROQUEL [Suspect]
     Indication: BIPOLAR DISORDER
     Dosage: 25-300 MG
     Route: 048
     Dates: start: 20001001, end: 20001101
  3. SEROQUEL [Suspect]
     Indication: SCHIZOPHRENIA
     Dosage: 25-300 MG
     Route: 048
     Dates: start: 20001001, end: 20001101
  4. SEROQUEL [Suspect]
     Indication: ANXIETY
     Dosage: 25-300 MG
     Route: 048
     Dates: start: 20001001, end: 20001101
  5. SEROQUEL [Suspect]
     Dosage: 25 - 750 MG
     Route: 048
     Dates: start: 20001025
  6. SEROQUEL [Suspect]
     Dosage: 25 - 750 MG
     Route: 048
     Dates: start: 20001025
  7. SEROQUEL [Suspect]
     Dosage: 25 - 750 MG
     Route: 048
     Dates: start: 20001025
  8. SEROQUEL [Suspect]
     Dosage: 25 - 750 MG
     Route: 048
     Dates: start: 20001025
  9. SEROQUEL [Suspect]
     Dosage: 25 MG - 100 MG
     Route: 048
     Dates: start: 20001101, end: 20050701
  10. SEROQUEL [Suspect]
     Dosage: 25 MG - 100 MG
     Route: 048
     Dates: start: 20001101, end: 20050701
  11. SEROQUEL [Suspect]
     Dosage: 25 MG - 100 MG
     Route: 048
     Dates: start: 20001101, end: 20050701
  12. SEROQUEL [Suspect]
     Dosage: 25 MG - 100 MG
     Route: 048
     Dates: start: 20001101, end: 20050701
  13. SEROQUEL [Suspect]
     Dosage: 50-300 MG
     Route: 048
     Dates: start: 20010801, end: 20021101
  14. SEROQUEL [Suspect]
     Dosage: 50-300 MG
     Route: 048
     Dates: start: 20010801, end: 20021101
  15. SEROQUEL [Suspect]
     Dosage: 50-300 MG
     Route: 048
     Dates: start: 20010801, end: 20021101
  16. SEROQUEL [Suspect]
     Dosage: 50-300 MG
     Route: 048
     Dates: start: 20010801, end: 20021101
  17. SEROQUEL [Suspect]
     Dosage: 20-50 MG
     Route: 048
     Dates: start: 20011001, end: 20030801
  18. SEROQUEL [Suspect]
     Dosage: 20-50 MG
     Route: 048
     Dates: start: 20011001, end: 20030801
  19. SEROQUEL [Suspect]
     Dosage: 20-50 MG
     Route: 048
     Dates: start: 20011001, end: 20030801
  20. SEROQUEL [Suspect]
     Dosage: 20-50 MG
     Route: 048
     Dates: start: 20011001, end: 20030801
  21. ABILIFY [Concomitant]
     Dosage: 5 TO 25 MG
     Dates: start: 20000101
  22. GEODON [Concomitant]
     Dosage: 5 TO 25 MG
     Dates: start: 20000101
  23. RISPERDAL [Concomitant]
     Dosage: 5 TO 25 MG
     Dates: start: 20000101
  24. ZYPREXA [Concomitant]
     Dosage: 5 TO 25 MG
     Dates: start: 20000101
  25. MECLIZINE [Concomitant]
     Indication: DIZZINESS
     Dosage: 25 - 50 MG
     Route: 048
     Dates: start: 20020315
  26. MECLIZINE [Concomitant]
     Indication: HEADACHE
     Dosage: 25 - 50 MG
     Route: 048
     Dates: start: 20020315
  27. LIPITOR [Concomitant]
     Route: 048
     Dates: start: 20020315
  28. ATIVAN [Concomitant]
     Dosage: 1 - 2 MG
     Route: 048
     Dates: start: 20001025
  29. CELEXA [Concomitant]
     Dosage: 20 - 40 MG
     Route: 048
     Dates: start: 20001025
  30. NORVASC [Concomitant]
     Indication: HYPERTENSION
     Dosage: 5 - 10 MG
     Route: 048
     Dates: start: 20020315
  31. SERZONE [Concomitant]
     Route: 048
     Dates: start: 20020315
  32. VICODIN [Concomitant]
     Dates: start: 20050101

REACTIONS (12)
  - ANXIETY [None]
  - BIPOLAR DISORDER [None]
  - BLOOD CHOLESTEROL INCREASED [None]
  - DIABETES MELLITUS INADEQUATE CONTROL [None]
  - DIABETIC COMPLICATION [None]
  - DIABETIC NEUROPATHY [None]
  - GLUCOSE TOLERANCE IMPAIRED [None]
  - HYPERGLYCAEMIA [None]
  - HYPERLIPIDAEMIA [None]
  - HYPOGLYCAEMIA [None]
  - SUICIDAL IDEATION [None]
  - TYPE 2 DIABETES MELLITUS [None]
